FAERS Safety Report 7214879-1 (Version None)
Quarter: 2011Q1

REPORT INFORMATION
  Report Type: 
  Country: None (occurrence: None)
  Receive Date: 20110107
  Receipt Date: 20100420
  Transmission Date: 20110831
  Serious: No
  Sender: FDA-Public Use
  Company Number: A0855896A

PATIENT
  Age: 74 Year
  Sex: Female

DRUGS (2)
  1. OTHER MEDICATIONS [Concomitant]
  2. LOVAZA [Suspect]
     Dosage: 4CAP PER DAY
     Route: 048
     Dates: start: 20090101, end: 20100101

REACTIONS (6)
  - FOOD AVERSION [None]
  - BACK PAIN [None]
  - AGEUSIA [None]
  - WEIGHT DECREASED [None]
  - NAUSEA [None]
  - PAROSMIA [None]
